FAERS Safety Report 8854059 (Version 1)
Quarter: 2012Q4

REPORT INFORMATION
  Report Type: Spontaneous
  Country: US (occurrence: None)
  Receive Date: 20121019
  Receipt Date: 20121019
  Transmission Date: 20130627
  Serious: Yes (Hospitalization)
  Sender: FDA-Public Use
  Company Number: None

PATIENT
  Sex: Female
  Weight: 55.79 kg

DRUGS (1)
  1. DOXYCYCLINE [Suspect]
     Indication: EYE INFECTION
     Dosage: Sept 25 - Oct 8
1 tablet daily mouth
     Route: 048

REACTIONS (2)
  - Cerebrovascular accident [None]
  - Unevaluable event [None]
